FAERS Safety Report 9342290 (Version 1)
Quarter: 2013Q2

REPORT INFORMATION
  Report Type: Spontaneous
  Country: IN (occurrence: IN)
  Receive Date: 20130611
  Receipt Date: 20130611
  Transmission Date: 20140414
  Serious: Yes (Other)
  Sender: FDA-Public Use
  Company Number: IN-PFIZER INC-2013169732

PATIENT
  Age: 57 Year
  Sex: Male

DRUGS (8)
  1. RIFAMPICIN [Suspect]
     Indication: PULMONARY TUBERCULOSIS
     Dosage: UNK
  2. MYCOPHENOLATE MOFETIL [Interacting]
     Indication: IMMUNOSUPPRESSANT DRUG THERAPY
     Dosage: 1500 MG, 1X/DAY
     Dates: start: 2003
  3. ISONIAZID [Concomitant]
     Indication: PULMONARY TUBERCULOSIS
     Dosage: UNK
  4. ETHAMBUTOL [Concomitant]
     Indication: PULMONARY TUBERCULOSIS
     Dosage: UNK
  5. PYRAZINAMIDE [Concomitant]
     Indication: PULMONARY TUBERCULOSIS
     Dosage: UNK
  6. PYRIDOXINE [Concomitant]
     Indication: PULMONARY TUBERCULOSIS
     Dosage: UNK
  7. PREDNISOLONE [Concomitant]
     Indication: IMMUNOSUPPRESSANT DRUG THERAPY
     Dosage: UNK
     Dates: start: 2003
  8. LOSARTAN [Concomitant]
     Indication: IMMUNOSUPPRESSANT DRUG THERAPY
     Dosage: UNK
     Dates: start: 2003

REACTIONS (3)
  - Drug interaction [Unknown]
  - Therapeutic response decreased [Recovered/Resolved]
  - Blood creatinine increased [Recovering/Resolving]
